FAERS Safety Report 8008848-1 (Version None)
Quarter: 2011Q4

REPORT INFORMATION
  Report Type: 
  Country: None (occurrence: None)
  Receive Date: 20111221
  Receipt Date: 20111212
  Transmission Date: 20120403
  Serious: Yes (Other)
  Sender: FDA-Public Use
  Company Number: 2011MA017657

PATIENT
  Age: 60 Year
  Sex: Female

DRUGS (9)
  1. DIAZEPAM [Concomitant]
  2. CYMBALTA [Suspect]
     Indication: ANXIETY
     Dosage: PO
     Route: 048
     Dates: start: 20111003
  3. CYMBALTA [Suspect]
     Indication: DEPRESSION
     Dosage: PO
     Route: 048
     Dates: start: 20111003
  4. OMEPRAZOLE [Concomitant]
  5. OXYCODONE HCL [Concomitant]
  6. MIRTAZAPINE [Suspect]
  7. MORPHINE [Concomitant]
  8. FEVERALL [Suspect]
  9. AMITRIPTYLINE HCL [Concomitant]

REACTIONS (2)
  - DYSPHAGIA [None]
  - WRONG TECHNIQUE IN DRUG USAGE PROCESS [None]
